FAERS Safety Report 6391124-0 (Version None)
Quarter: 2009Q4

REPORT INFORMATION
  Report Type: 
  Country: None (occurrence: None)
  Receive Date: 20091005
  Receipt Date: 20090923
  Transmission Date: 20100525
  Serious: No
  Sender: FDA-Public Use
  Company Number: 2009010646

PATIENT
  Sex: Female

DRUGS (3)
  1. FENTORA [Suspect]
     Indication: CENTRAL PAIN SYNDROME
     Dosage: 200 MCG, BU
     Route: 002
  2. OXYCONTIN [Concomitant]
  3. FENTANYL [Concomitant]

REACTIONS (2)
  - MEDICATION ERROR [None]
  - POLLAKIURIA [None]
